FAERS Safety Report 6509876-5 (Version None)
Quarter: 2009Q4

REPORT INFORMATION
  Report Type: 
  Country: None (occurrence: None)
  Receive Date: 20091221
  Receipt Date: 20091221
  Transmission Date: 20100525
  Serious: Yes (Hospitalization)
  Sender: FDA-Public Use
  Company Number: None

PATIENT
  Age: 48 Year
  Sex: Female
  Weight: 89.3586 kg

DRUGS (1)
  1. CRESTOR [Suspect]
     Indication: BLOOD CHOLESTEROL INCREASED
     Dosage: 1 ONCE DAILY
     Dates: start: 20091101, end: 20091120

REACTIONS (5)
  - CHEST PAIN [None]
  - DYSPEPSIA [None]
  - FEAR [None]
  - HYPERHIDROSIS [None]
  - PALPITATIONS [None]
